FAERS Safety Report 4579016-0 (Version None)
Quarter: 2005Q1

REPORT INFORMATION
  Report Type: 
  Country: None (occurrence: None)
  Receive Date: 20050211
  Receipt Date: 20050208
  Transmission Date: 20050727
  Serious: Yes (Other)
  Sender: FDA-Public Use
  Company Number: DE-MERCK-0502DEU00067

PATIENT
  Sex: Male

DRUGS (2)
  1. VIOXX [Suspect]
     Indication: ANGINA PECTORIS
     Route: 048
     Dates: start: 20031128, end: 20040401
  2. [THERAPY UNSPECIFIED] [Concomitant]
     Indication: ANGINA PECTORIS
     Route: 065

REACTIONS (1)
  - MYOCARDIAL INFARCTION [None]
